FAERS Safety Report 18725923 (Version 1)
Quarter: 2021Q1

REPORT INFORMATION
  Report Type: Spontaneous
  Country: US (occurrence: US)
  Receive Date: 20210111
  Receipt Date: 20210111
  Transmission Date: 20210419
  Serious: Yes (Disabling, Other)
  Sender: FDA-Public Use
  Company Number: US-BAUSCH-BL-2020-039663

PATIENT
  Sex: Female

DRUGS (2)
  1. SOLODYN [Suspect]
     Active Substance: MINOCYCLINE HYDROCHLORIDE
     Indication: ACNE
     Route: 048
  2. ETODOLAC. [Suspect]
     Active Substance: ETODOLAC
     Indication: ANTIINFLAMMATORY THERAPY
     Route: 065

REACTIONS (4)
  - Nausea [Recovered/Resolved]
  - Blister [Recovered/Resolved]
  - Lupus-like syndrome [Recovered/Resolved]
  - Gait inability [Recovered/Resolved]
